FAERS Safety Report 14159954 (Version 2)
Quarter: 2017Q4

REPORT INFORMATION
  Report Type: Spontaneous
  Country: US (occurrence: US)
  Receive Date: 20171106
  Receipt Date: 20171220
  Transmission Date: 20180321
  Serious: No
  Sender: FDA-Public Use
  Company Number: US-PFIZER INC-2017340627

PATIENT
  Age: 63 Year
  Sex: Female
  Weight: 75 kg

DRUGS (16)
  1. AROMASIN [Suspect]
     Active Substance: EXEMESTANE
     Dosage: 25 MG, 1X/DAY (WITH BREAKFAST)
     Route: 048
     Dates: start: 20170802
  2. IBRANCE [Suspect]
     Active Substance: PALBOCICLIB
     Dosage: 100 MG, UNK [FOR 21 DAYS]
     Dates: start: 20150512, end: 20171023
  3. ONDANSETRON [Concomitant]
     Active Substance: ONDANSETRON
     Indication: NAUSEA
     Dosage: 4 MG, AS NEEDED (EVERY 8 HOUR)
     Dates: start: 20171016
  4. IBRANCE [Suspect]
     Active Substance: PALBOCICLIB
     Dosage: 100 MG, UNK
     Dates: start: 20150730, end: 20171023
  5. IBRANCE [Suspect]
     Active Substance: PALBOCICLIB
     Indication: BREAST CANCER METASTATIC
     Dosage: 125 MG, UNK [FOR 21 DAYS]
  6. MECLIZINE [Concomitant]
     Active Substance: MECLIZINE HYDROCHLORIDE
     Indication: DIZZINESS
     Dosage: 12.5 MG, 3X/DAY
     Dates: start: 20171016
  7. IBUPROFEN. [Concomitant]
     Active Substance: IBUPROFEN
     Indication: INFLAMMATION
     Dosage: 600 MG, 3X/DAY [EVERY 8 HOURS]
     Dates: start: 20171003, end: 20171027
  8. TRAMADOL. [Concomitant]
     Active Substance: TRAMADOL
     Indication: BONE PAIN
     Dosage: 50 MG, 3X/DAY (EVERY 8 HOURS)
     Dates: start: 20171011, end: 20171027
  9. SENNA [Concomitant]
     Active Substance: SENNA LEAF\SENNOSIDES\SENNOSIDES A AND B
     Indication: FAECES HARD
     Dosage: 17.2 MG, 2X/DAY (8.6 MG TWO IN MORNING AND TWO AT NIGHT)
     Dates: start: 20150512
  10. RANITIDINE. [Concomitant]
     Active Substance: RANITIDINE
     Indication: GASTRITIS
     Dosage: 150 MG, AS NEEDED [ONE TIME A DAY OR AS NEEDED]
     Dates: start: 20170923
  11. AROMASIN [Suspect]
     Active Substance: EXEMESTANE
     Indication: BREAST CANCER METASTATIC
     Dosage: 25 MG, 1X/DAY
     Dates: start: 20150512, end: 20171030
  12. OMEPRAZOLE. [Concomitant]
     Active Substance: OMEPRAZOLE
     Indication: GASTROOESOPHAGEAL REFLUX DISEASE
     Dosage: 20 MG, 1X/DAY
     Dates: start: 20150512
  13. AROMASIN [Suspect]
     Active Substance: EXEMESTANE
     Dosage: 25 MG, UNK
  14. IBRANCE [Suspect]
     Active Substance: PALBOCICLIB
     Dosage: 100 MG, CYCLIC (DAILY FOR 21 DAYS, THEN STOP FOR 7 DAYS)
     Route: 048
     Dates: start: 20170802
  15. FENTANYL. [Concomitant]
     Active Substance: FENTANYL
     Indication: PAIN
     Dosage: 50 MG, UNK [EVERY 72 HOURS]
     Dates: start: 20171016
  16. HYDROCODONE BITARTRATE AND ACETAMINOPHEN [Concomitant]
     Active Substance: ACETAMINOPHEN\HYDROCODONE BITARTRATE
     Indication: BONE PAIN
     Dosage: 1 DF, 4X/DAY [HYDROCODONE BITARTRATE: 5MG, PARACETAMOL: 325MG] [EVERY 6 HOURS]
     Dates: start: 20171003

REACTIONS (3)
  - Memory impairment [Unknown]
  - Neoplasm progression [Unknown]
  - Drug intolerance [Unknown]

NARRATIVE: CASE EVENT DATE: 20171030
